FAERS Safety Report 14081184 (Version 2)
Quarter: 2017Q4

REPORT INFORMATION
  Report Type: Report from Study
  Country: CN (occurrence: CN)
  Receive Date: 20171012
  Receipt Date: 20171020
  Transmission Date: 20180321
  Serious: Yes (Death)
  Sender: FDA-Public Use
  Company Number: CN-PFIZER INC-2017434805

PATIENT

DRUGS (1)
  1. CYTARABINE. [Suspect]
     Active Substance: CYTARABINE
     Indication: ACUTE MYELOID LEUKAEMIA
     Dosage: UNK, CYCLIC (100 TO 150 MG/M2, Q12 H, FOR 6 DOSES IN EACH CYCLE AND TOTAL OF 2 TO 6 CYCLES)

REACTIONS (2)
  - Bone marrow failure [Fatal]
  - Cerebral haemorrhage [Fatal]
